FAERS Safety Report 7374170-X (Version None)
Quarter: 2011Q1

REPORT INFORMATION
  Report Type: 
  Country: None (occurrence: None)
  Receive Date: 20110325
  Receipt Date: 20110314
  Transmission Date: 20110831
  Serious: Yes (Other)
  Sender: FDA-Public Use
  Company Number: US-JNJFOC-20110309073

PATIENT
  Age: 64 Year
  Sex: Female
  Weight: 65.77 kg

DRUGS (5)
  1. ZYRTEC-D 12 HOUR [Suspect]
     Route: 048
  2. VITAMIN D W/ CALCIUM [Concomitant]
     Indication: NUTRITIONAL SUPPORT
     Route: 065
  3. MULTI-VITAMINS [Concomitant]
     Indication: NUTRITIONAL SUPPORT
     Route: 065
  4. ZYRTEC-D 12 HOUR [Suspect]
     Indication: MULTIPLE ALLERGIES
     Route: 048
  5. THYROID PREPARATION [Concomitant]
     Indication: HYPOTHYROIDISM
     Route: 065

REACTIONS (4)
  - PAIN IN EXTREMITY [None]
  - HYPERSENSITIVITY [None]
  - BACK PAIN [None]
  - ERYTHEMA [None]
